FAERS Safety Report 22005663 (Version 1)
Quarter: 2023Q1

REPORT INFORMATION
  Report Type: Spontaneous
  Country: GB (occurrence: GB)
  Receive Date: 20230217
  Receipt Date: 20230217
  Transmission Date: 20230418
  Serious: Yes (Other)
  Sender: FDA-Public Use
  Company Number: None

PATIENT
  Sex: Female

DRUGS (1)
  1. FLUCONAZOLE [Suspect]
     Active Substance: FLUCONAZOLE
     Dosage: 150 MG, 2ND DOSE 2ND JAN - TUESDAY 9TH OF JANUARY
     Dates: start: 20171227

REACTIONS (7)
  - Flank pain [Unknown]
  - Renal pain [Unknown]
  - Tendon pain [Recovered/Resolved]
  - Arthralgia [Recovered/Resolved]
  - Myalgia [Recovered/Resolved]
  - Swelling [Unknown]
  - Renal hypertrophy [Unknown]
